FAERS Safety Report 5143647-X (Version None)
Quarter: 2006Q4

REPORT INFORMATION
  Report Type: 
  Country: None (occurrence: None)
  Receive Date: 20061103
  Receipt Date: 20061026
  Transmission Date: 20070319
  Serious: Yes (Hospitalization)
  Sender: FDA-Public Use
  Company Number: GB-BRISTOL-MYERS SQUIBB COMPANY-13560883

PATIENT
  Sex: Male

DRUGS (1)
  1. CARDIOLITE [Suspect]
     Indication: SCAN MYOCARDIAL PERFUSION
     Dates: start: 20060915

REACTIONS (11)
  - ABDOMINAL DISCOMFORT [None]
  - ANXIETY [None]
  - CIRCULATORY COLLAPSE [None]
  - DIZZINESS [None]
  - FATIGUE [None]
  - HEADACHE [None]
  - LETHARGY [None]
  - NAUSEA [None]
  - PHARYNGOLARYNGEAL PAIN [None]
  - RENAL PAIN [None]
  - TREMOR [None]
